FAERS Safety Report 12092978 (Version 1)
Quarter: 2016Q1

REPORT INFORMATION
  Report Type: Spontaneous
  Country: US (occurrence: US)
  Receive Date: 20160219
  Receipt Date: 20160219
  Transmission Date: 20160526
  Serious: Yes (Other)
  Sender: FDA-Public Use
  Company Number: US-TEVA-568793USA

PATIENT
  Age: 19 Year
  Sex: Male

DRUGS (1)
  1. AMPHETAMINE W/DEXTROAMPHETAMINE [Suspect]
     Active Substance: AMPHETAMINE SULFATE\DEXTROAMPHETAMINE
     Route: 048
     Dates: start: 20150508, end: 20150529

REACTIONS (2)
  - Eye disorder [Unknown]
  - Seizure [Unknown]

NARRATIVE: CASE EVENT DATE: 20150529
